FAERS Safety Report 5299706-4 (Version None)
Quarter: 2007Q2

REPORT INFORMATION
  Report Type: 
  Country: None (occurrence: None)
  Receive Date: 20070417
  Receipt Date: 20070406
  Transmission Date: 20071010
  Serious: Yes (Hospitalization)
  Sender: FDA-Public Use
  Company Number: US-GENENTECH-238236

PATIENT
  Sex: Female

DRUGS (5)
  1. BEVACIZUMAB [Suspect]
     Indication: BREAST CANCER
     Dosage: 15 MG/M2, Q2W
     Route: 042
  2. ARIMIDEX [Concomitant]
     Indication: DRUG USE FOR UNKNOWN INDICATION
     Dosage: 1 MG, QD
     Route: 048
     Dates: start: 20061206
  3. COLACE [Concomitant]
     Indication: DRUG USE FOR UNKNOWN INDICATION
     Dosage: 1 TABLET, QD
     Route: 048
     Dates: start: 20061003
  4. MOTRIN IB [Concomitant]
     Indication: DRUG USE FOR UNKNOWN INDICATION
     Dosage: 200 MG, PRN
     Route: 048
     Dates: start: 20060628
  5. LEVOXYL [Concomitant]
     Indication: DRUG USE FOR UNKNOWN INDICATION
     Dosage: UNK, QD
     Route: 048
     Dates: start: 20061228

REACTIONS (2)
  - DYSPNOEA [None]
  - PLEURAL EFFUSION [None]
